FAERS Safety Report 19173651 (Version 3)
Quarter: 2021Q3

REPORT INFORMATION
  Report Type: Spontaneous
  Country: US (occurrence: US)
  Receive Date: 20210423
  Receipt Date: 20210813
  Transmission Date: 20211014
  Serious: Yes (Death, Hospitalization, Other)
  Sender: FDA-Public Use
  Company Number: US-SUN PHARMACEUTICAL INDUSTRIES LTD-2021R1-290108

PATIENT
  Age: 60 Year
  Sex: Female

DRUGS (2)
  1. EPOPROSTENOL. [Suspect]
     Active Substance: EPOPROSTENOL
     Dosage: 24 NG/KG/MIN CONTINUOUS
     Route: 042
     Dates: start: 20210322
  2. EPOPROSTENOL. [Suspect]
     Active Substance: EPOPROSTENOL
     Indication: PULMONARY ARTERIAL HYPERTENSION
     Dosage: 1.5 MILLIGRAM CONTINOUS
     Route: 042
     Dates: start: 20210322

REACTIONS (8)
  - Diarrhoea [Unknown]
  - Mental status changes [Unknown]
  - Skin irritation [Unknown]
  - Asthenia [Unknown]
  - Respiratory failure [Unknown]
  - Hypopnoea [Unknown]
  - Death [Fatal]
  - Pain [Unknown]

NARRATIVE: CASE EVENT DATE: 2021
